FAERS Safety Report 7486403-X (Version None)
Quarter: 2011Q2

REPORT INFORMATION
  Report Type: 
  Country: None (occurrence: None)
  Receive Date: 20110517
  Receipt Date: 20110428
  Transmission Date: 20111010
  Serious: No
  Sender: FDA-Public Use
  Company Number: US-B.I. PHARMACEUTICALS,INC./RIDGEFIELD-2011-BP-08568BP

PATIENT
  Sex: Male

DRUGS (4)
  1. NEXIUM [Concomitant]
  2. CRESTOR [Concomitant]
  3. PRADAXA [Suspect]
     Indication: ATRIAL FIBRILLATION
     Dosage: 300 MG
     Route: 048
     Dates: start: 20101101
  4. CARVEDILOL [Concomitant]

REACTIONS (3)
  - FALL [None]
  - JOINT INJURY [None]
  - SEROMA [None]
